FAERS Safety Report 9280347 (Version 3)
Quarter: 2013Q4

REPORT INFORMATION
  Report Type: Report from Study
  Country: JP (occurrence: JP)
  Receive Date: 20130509
  Receipt Date: 20131120
  Transmission Date: 20140711
  Serious: Yes (Death, Other)
  Sender: FDA-Public Use
  Company Number: JP-ASTELLAS-2013US004821

PATIENT
  Age: 69 Year
  Sex: Female

DRUGS (34)
  1. ERLOTINIB TABLET [Suspect]
     Indication: ADENOCARCINOMA PANCREAS
     Dosage: 100 MG, UID/QD
     Route: 048
     Dates: start: 20120323, end: 20120524
  2. ERLOTINIB TABLET [Suspect]
     Dosage: 50 MG, UID/QD
     Route: 048
     Dates: start: 20120627, end: 20120821
  3. ALDACTONE A [Suspect]
     Indication: ADENOCARCINOMA PANCREAS
     Dosage: 40 MG, UID/QD
     Route: 048
     Dates: start: 20120601, end: 2012
  4. LASIX /00032601/ [Suspect]
     Indication: ADENOCARCINOMA PANCREAS
     Dosage: 20 MG, UID/QD
     Route: 048
     Dates: start: 20120511, end: 2012
  5. GEMCITABINE HYDROCHLORIDE [Concomitant]
     Indication: ADENOCARCINOMA PANCREAS
     Dosage: 1000 MG/M2, UID/QD
     Route: 042
     Dates: start: 20120323, end: 20120323
  6. GEMCITABINE HYDROCHLORIDE [Concomitant]
     Dosage: 1000 MG/M2, UID/QD
     Route: 042
     Dates: start: 20120330, end: 20120330
  7. GEMCITABINE HYDROCHLORIDE [Concomitant]
     Dosage: 1000 MG/M2, UID/QD
     Route: 042
     Dates: start: 20120406, end: 20120406
  8. GEMCITABINE HYDROCHLORIDE [Concomitant]
     Dosage: 1000 MG/M2, UID/QD
     Route: 042
     Dates: start: 20120420, end: 20120420
  9. GEMCITABINE HYDROCHLORIDE [Concomitant]
     Dosage: 1000 MG/M2, UID/QD
     Route: 042
     Dates: start: 20120427, end: 20120427
  10. GEMCITABINE HYDROCHLORIDE [Concomitant]
     Dosage: 1000 MG/M2, UID/QD
     Route: 042
     Dates: start: 20120511, end: 20120511
  11. GEMCITABINE HYDROCHLORIDE [Concomitant]
     Dosage: 1000 MG/M2, UID/QD
     Route: 042
     Dates: start: 20120525, end: 20120525
  12. GEMCITABINE HYDROCHLORIDE [Concomitant]
     Dosage: 1000 MG/M2, UID/QD
     Route: 042
     Dates: start: 20120601, end: 20120601
  13. GEMCITABINE HYDROCHLORIDE [Concomitant]
     Dosage: 1000 MG/M2, UID/QD
     Route: 042
     Dates: start: 20120608, end: 20120608
  14. GEMCITABINE HYDROCHLORIDE [Concomitant]
     Dosage: 1000 MG/M2, UID/QD
     Route: 042
     Dates: start: 20120627, end: 20120627
  15. GEMCITABINE HYDROCHLORIDE [Concomitant]
     Dosage: 1000 MG/M2, UID/QD
     Route: 042
     Dates: start: 20120704, end: 20120704
  16. GEMCITABINE HYDROCHLORIDE [Concomitant]
     Dosage: 1000 MG/M2, UID/QD
     Route: 042
     Dates: start: 20120711, end: 20120711
  17. GEMCITABINE HYDROCHLORIDE [Concomitant]
     Dosage: 1000 MG/M2, UID/QD
     Route: 042
     Dates: start: 20120723, end: 20120723
  18. GEMCITABINE HYDROCHLORIDE [Concomitant]
     Dosage: 1000 MG/M2, UID/QD
     Route: 042
     Dates: start: 20120801, end: 20120801
  19. GEMCITABINE HYDROCHLORIDE [Concomitant]
     Dosage: 1000 MG/M2, UID/QD
     Route: 042
     Dates: start: 20120808, end: 20120808
  20. GEMCITABINE HYDROCHLORIDE [Concomitant]
     Dosage: 1000 MG/M2, UID/QD
     Route: 042
     Dates: start: 20120822, end: 20120822
  21. GEMCITABINE HYDROCHLORIDE [Concomitant]
     Dosage: 1000 MG/M2, UID/QD
     Route: 042
     Dates: start: 20120828, end: 20120829
  22. AMLODIN [Concomitant]
     Indication: PRODUCT USED FOR UNKNOWN INDICATION
     Dosage: 5 MG, UID/QD
     Route: 048
  23. DIOVAN [Concomitant]
     Indication: PRODUCT USED FOR UNKNOWN INDICATION
     Dosage: 80 MG, UID/QD
     Route: 048
  24. DEPAS [Concomitant]
     Indication: PRODUCT USED FOR UNKNOWN INDICATION
     Dosage: 0.5 MG, UID/QD
     Route: 048
  25. TAKEPRON [Concomitant]
     Indication: PRODUCT USED FOR UNKNOWN INDICATION
     Dosage: 30 MG, UID/QD
     Route: 048
  26. MEVALOTIN [Concomitant]
     Indication: PRODUCT USED FOR UNKNOWN INDICATION
     Dosage: 10 MG, UID/QD
     Route: 048
  27. HALCION [Concomitant]
     Indication: PRODUCT USED FOR UNKNOWN INDICATION
     Dosage: 0.25 MG, UID/QD
     Route: 048
  28. GASTER D [Concomitant]
     Indication: PRODUCT USED FOR UNKNOWN INDICATION
     Dosage: 40 MG, UID/QD
     Route: 048
  29. OXYCONTIN [Concomitant]
     Indication: ADENOCARCINOMA PANCREAS
     Dosage: 10 MG, UID/QD
     Route: 048
     Dates: start: 20120402, end: 20120415
  30. OXYCONTIN [Concomitant]
     Dosage: 10 MG, UID/QD
     Route: 048
  31. OXINORM                            /00045603/ [Concomitant]
     Indication: ADENOCARCINOMA PANCREAS
     Dosage: 5 MG, SINGLE USE
     Route: 048
     Dates: start: 20120402, end: 20120415
  32. DUROTEP [Concomitant]
     Indication: ADENOCARCINOMA PANCREAS
     Dosage: 2.1 MG, UID/QD
     Route: 062
     Dates: start: 20120416
  33. NAIXAN                             /00256201/ [Concomitant]
     Indication: ADENOCARCINOMA PANCREAS
     Dosage: 300 MG, UID/QD
     Route: 048
     Dates: start: 20120416
  34. BONALON [Concomitant]
     Indication: PRODUCT USED FOR UNKNOWN INDICATION
     Dosage: 5 MG, UID/QD
     Route: 048
     Dates: start: 20120423

REACTIONS (5)
  - Skin disorder [Recovering/Resolving]
  - Malignant neoplasm progression [Fatal]
  - Renal impairment [Not Recovered/Not Resolved]
  - Oedema [Recovered/Resolved]
  - Dehydration [Unknown]
